FAERS Safety Report 8182631-9 (Version None)
Quarter: 2012Q1

REPORT INFORMATION
  Report Type: 
  Country: None (occurrence: None)
  Receive Date: 20120305
  Receipt Date: 20120228
  Transmission Date: 20120608
  Serious: No
  Sender: FDA-Public Use
  Company Number: US-PFIZER INC-2012017477

PATIENT
  Sex: Female

DRUGS (4)
  1. ADVIL COLD AND SINUS [Suspect]
     Indication: NASAL CONGESTION
     Dosage: UNK
     Route: 048
  2. ADVIL COLD AND SINUS [Suspect]
     Indication: NASOPHARYNGITIS
     Dosage: UNK, 1X/DAY
     Route: 048
  3. ADVIL CONGESTION RELIEF [Suspect]
     Indication: NASOPHARYNGITIS
     Dosage: 200/10 MG, 1X/DAY
     Route: 048
     Dates: start: 20120119, end: 20120119
  4. ADVIL CONGESTION RELIEF [Suspect]
     Indication: NASAL CONGESTION

REACTIONS (5)
  - NASAL CONGESTION [None]
  - HEADACHE [None]
  - DRUG EFFECT DECREASED [None]
  - FATIGUE [None]
  - DRUG INEFFECTIVE [None]
